FAERS Safety Report 20942821 (Version 6)
Quarter: 2023Q1

REPORT INFORMATION
  Report Type: Spontaneous
  Country: US (occurrence: US)
  Receive Date: 20220610
  Receipt Date: 20230120
  Transmission Date: 20230417
  Serious: No
  Sender: FDA-Public Use
  Company Number: US-BRISTOL-MYERS SQUIBB COMPANY-2022-055076

PATIENT
  Age: 76 Year
  Sex: Female

DRUGS (4)
  1. CAMZYOS [Interacting]
     Active Substance: MAVACAMTEN
     Indication: Product used for unknown indication
     Route: 048
  2. CAMZYOS [Interacting]
     Active Substance: MAVACAMTEN
     Route: 048
  3. DILTIAZEM [Interacting]
     Active Substance: DILTIAZEM
     Indication: Product used for unknown indication
  4. ELIQUIS [Concomitant]
     Active Substance: APIXABAN
     Indication: Thrombosis prophylaxis

REACTIONS (3)
  - Dyspnoea [Unknown]
  - Drug interaction [Unknown]
  - Arthritis [Unknown]

NARRATIVE: CASE EVENT DATE: 20220607
